FAERS Safety Report 18897652 (Version 1)
Quarter: 2021Q1

REPORT INFORMATION
  Report Type: Spontaneous
  Country: US (occurrence: US)
  Receive Date: 20210215
  Receipt Date: 20210215
  Transmission Date: 20210420
  Serious: No
  Sender: FDA-Public Use
  Company Number: None

PATIENT
  Age: 65 Year
  Sex: Female

DRUGS (8)
  1. ALYQ [Suspect]
     Active Substance: TADALAFIL
     Indication: PULMONARY ARTERIAL HYPERTENSION
     Route: 048
  2. KEPPRA [Concomitant]
     Active Substance: LEVETIRACETAM
  3. LASIX [Concomitant]
     Active Substance: FUROSEMIDE
  4. ARANESP [Concomitant]
     Active Substance: DARBEPOETIN ALFA
  5. UPTRAVI [Concomitant]
     Active Substance: SELEXIPAG
  6. ZINC. [Concomitant]
     Active Substance: ZINC
  7. LIPITOR [Concomitant]
     Active Substance: ATORVASTATIN CALCIUM
  8. AMBRISENTAN [Suspect]
     Active Substance: AMBRISENTAN
     Indication: PULMONARY ARTERIAL HYPERTENSION
     Route: 048

REACTIONS (4)
  - Anaemia [None]
  - Loss of consciousness [None]
  - Pain in jaw [None]
  - Hot flush [None]

NARRATIVE: CASE EVENT DATE: 20210215
